FAERS Safety Report 8478774-2 (Version None)
Quarter: 2012Q2

REPORT INFORMATION
  Report Type: 
  Country: None (occurrence: None)
  Receive Date: 20120629
  Receipt Date: 20120628
  Transmission Date: 20120825
  Serious: Yes (Death)
  Sender: FDA-Public Use
  Company Number: PE-B.I. PHARMACEUTICALS,INC./RIDGEFIELD-2012-RA-00171RA

PATIENT
  Age: 90 Year
  Sex: Female
  Weight: 48 kg

DRUGS (9)
  1. ALBUTEROL SULATE [Concomitant]
  2. ASPIRIN [Suspect]
     Indication: ANTIPLATELET THERAPY
     Dosage: 400 MG
     Route: 048
     Dates: start: 20120601, end: 20120601
  3. VALSARTAN [Concomitant]
     Indication: HYPERTENSION
     Dosage: 640 MG
     Route: 048
  4. TRAMADOL HCL [Concomitant]
     Route: 048
  5. HYDROCHLOROTHIAZIDE [Concomitant]
     Indication: HYPERTENSION
     Dosage: 100 MG
     Route: 048
  6. BECLOMETHASONE DIPROPIONATE [Concomitant]
  7. PRADAXA [Suspect]
     Indication: CEREBROVASCULAR ACCIDENT PROPHYLAXIS
     Dosage: 220 MG
     Route: 048
     Dates: start: 20120601, end: 20120601
  8. AMLODIPINE [Concomitant]
     Indication: HYPERTENSION
     Dosage: 20 MG
     Route: 048
  9. CLOPIDOGREL [Suspect]
     Indication: ANTIPLATELET THERAPY
     Route: 048
     Dates: end: 20120601

REACTIONS (1)
  - GASTROINTESTINAL HAEMORRHAGE [None]
